FAERS Safety Report 18842179 (Version 2)
Quarter: 2021Q1

REPORT INFORMATION
  Report Type: Report from Study
  Country: US (occurrence: US)
  Receive Date: 20210203
  Receipt Date: 20210302
  Transmission Date: 20210419
  Serious: Yes (Life-Threatening, Hospitalization)
  Sender: FDA-Public Use
  Company Number: US-GILEAD-2021-0515459

PATIENT
  Age: 21 Year
  Sex: Male
  Weight: 112.9 kg

DRUGS (36)
  1. ENTOCORT [Concomitant]
     Active Substance: BUDESONIDE
     Dosage: UNK
     Dates: start: 20200604
  2. NEUPOGEN [Concomitant]
     Active Substance: FILGRASTIM
  3. ENTOCORT [Concomitant]
     Active Substance: BUDESONIDE
     Indication: GRAFT VERSUS HOST DISEASE
     Dosage: UNK
     Dates: start: 20201026, end: 20201201
  4. VALCYTE [Concomitant]
     Active Substance: VALGANCICLOVIR HYDROCHLORIDE
     Dosage: UNK
     Dates: start: 20201118, end: 20201123
  5. ACTIGALL [Concomitant]
     Active Substance: URSODIOL
  6. GRANULOCYTE COLONY STIMULATING FACTOR [Concomitant]
     Active Substance: GRANULOCYTE COLONY-STIMULATING FACTOR NOS
  7. TPN [AMINO ACIDS NOS;CARBOHYDRATES NOS;MINERALS NOS;VITAMINS NOS] [Concomitant]
     Active Substance: AMINO ACIDS\CARBOHYDRATES\MINERALS\VITAMINS
     Dosage: UNK
     Dates: end: 20201026
  8. CARNITOR [Concomitant]
     Active Substance: LEVOCARNITINE
  9. HYDROCORTISONE. [Concomitant]
     Active Substance: HYDROCORTISONE
     Dosage: CREAM
  10. CYCLOPHOSPHAMIDE. [Suspect]
     Active Substance: CYCLOPHOSPHAMIDE
     Indication: BONE MARROW CONDITIONING REGIMEN
     Route: 042
  11. AQUAPHOR [WHITE SOFT PARAFFIN] [Concomitant]
     Dosage: TO SKIN TID
  12. PENTAMIDINE [Concomitant]
     Active Substance: PENTAMIDINE
     Dosage: 4 MG/KG
     Dates: end: 20201201
  13. GAMUNEX?C [Concomitant]
     Active Substance: HUMAN IMMUNOGLOBULIN G
     Dosage: 50 G, Q2WK
     Dates: end: 20201201
  14. SOLU?CORTEF [Concomitant]
     Active Substance: HYDROCORTISONE SODIUM SUCCINATE
  15. PRAVACHOL [Concomitant]
     Active Substance: PRAVASTATIN SODIUM
  16. KTE?X19 [Suspect]
     Active Substance: AXICABTAGENE CILOLEUCEL
     Indication: ACUTE LYMPHOCYTIC LEUKAEMIA
     Dosage: 68 ML
     Route: 042
     Dates: start: 20190901, end: 20190901
  17. FLUDARABINE [Suspect]
     Active Substance: FLUDARABINE PHOSPHATE
     Indication: BONE MARROW CONDITIONING REGIMEN
     Route: 042
  18. ECULIZUMAB [Concomitant]
     Active Substance: ECULIZUMAB
     Dosage: UNK
     Dates: start: 20200706, end: 20201013
  19. PREVYMIS [Concomitant]
     Active Substance: LETERMOVIR
     Indication: ANTIVIRAL PROPHYLAXIS
     Dosage: UNK
     Dates: start: 20200909, end: 20201118
  20. KENALOG [Concomitant]
     Active Substance: TRIAMCINOLONE ACETONIDE
     Indication: RASH
     Dosage: 0.1% OINTMENT FOR BODY BID
  21. KENALOG [Concomitant]
     Active Substance: TRIAMCINOLONE ACETONIDE
     Indication: PRURITUS
  22. DERMA SMOOTHE [Concomitant]
     Dosage: TO SCALP
     Dates: start: 20201116
  23. CIDOFOVIR. [Concomitant]
     Active Substance: CIDOFOVIR
     Indication: ADENOVIRUS INFECTION
     Dosage: 5 MG/KG, Q1WK
     Dates: start: 20200529, end: 20201021
  24. PREDNISONE. [Concomitant]
     Active Substance: PREDNISONE
     Dosage: UNK
     Dates: start: 20200502
  25. CANCIDAS [Concomitant]
     Active Substance: CASPOFUNGIN ACETATE
  26. KLOR?CON [Concomitant]
     Active Substance: POTASSIUM CHLORIDE
  27. FLU [Concomitant]
     Active Substance: INFLUENZA VIRUS VACCINE
     Dosage: UNK
     Dates: start: 20200928, end: 20200928
  28. PRAVASTATIN. [Concomitant]
     Active Substance: PRAVASTATIN
     Dosage: UNK, QD
  29. VANCOMYCIN [Concomitant]
     Active Substance: VANCOMYCIN
  30. PREVACID [Concomitant]
     Active Substance: LANSOPRAZOLE
  31. FISH OIL [Concomitant]
     Active Substance: FISH OIL
     Dosage: UNK
  32. VITAMIN D [ERGOCALCIFEROL] [Concomitant]
     Active Substance: ERGOCALCIFEROL
  33. LEVOFLOXACIN. [Concomitant]
     Active Substance: LEVOFLOXACIN
     Dosage: UNK
     Dates: start: 20200706, end: 20201110
  34. VALCYTE [Concomitant]
     Active Substance: VALGANCICLOVIR HYDROCHLORIDE
     Dosage: UNK
     Dates: start: 20201201
  35. CASPOFUNGIN [Concomitant]
     Active Substance: CASPOFUNGIN
  36. FLU [Concomitant]
     Active Substance: INFLUENZA VIRUS VACCINE
     Dosage: UNK
     Dates: start: 20201103, end: 20201103

REACTIONS (2)
  - Cerebrovascular accident [Recovering/Resolving]
  - Bacteraemia [Recovering/Resolving]

NARRATIVE: CASE EVENT DATE: 20201118
